FAERS Safety Report 10387678 (Version 1)
Quarter: 2014Q3

REPORT INFORMATION
  Report Type: Spontaneous
  Country: US (occurrence: None)
  Receive Date: 20140814
  Receipt Date: 20140814
  Transmission Date: 20150326
  Serious: Yes (Disabling, Other)
  Sender: FDA-Public Use
  Company Number: None

PATIENT
  Age: 36 Year
  Sex: Female
  Weight: 82.56 kg

DRUGS (1)
  1. DEPO-PROVERA [Suspect]
     Active Substance: MEDROXYPROGESTERONE ACETATE
     Dosage: INJECTION 150 ML --   --

REACTIONS (22)
  - Insomnia [None]
  - Syncope [None]
  - Depression [None]
  - Bone loss [None]
  - Decreased appetite [None]
  - Confusional state [None]
  - Hot flush [None]
  - Uterine leiomyoma [None]
  - Loss of libido [None]
  - Nail disorder [None]
  - Hair growth abnormal [None]
  - Nail ridging [None]
  - Nausea [None]
  - Vomiting [None]
  - Papule [None]
  - Fatigue [None]
  - Abdominal pain [None]
  - Alopecia [None]
  - Amenorrhoea [None]
  - Menorrhagia [None]
  - Thrombosis [None]
  - Skin disorder [None]

NARRATIVE: CASE EVENT DATE: 20130731
